FAERS Safety Report 9665577 (Version 5)
Quarter: 2016Q1

REPORT INFORMATION
  Report Type: Report from Study
  Country: AU (occurrence: AU)
  Receive Date: 20131104
  Receipt Date: 20160316
  Transmission Date: 20160526
  Serious: Yes (Hospitalization)
  Sender: FDA-Public Use
  Company Number: AU-UCBSA-101042

PATIENT
  Age: 48 Year
  Sex: Female
  Weight: 69 kg

DRUGS (33)
  1. *ADALIMUMAB [Suspect]
     Active Substance: ADALIMUMAB
     Indication: RHEUMATOID ARTHRITIS
     Dosage: UNK
     Dates: start: 20130326
  2. NEXIUM [Concomitant]
     Active Substance: ESOMEPRAZOLE MAGNESIUM
     Indication: GASTROOESOPHAGEAL REFLUX PROPHYLAXIS
     Dosage: QAM
     Route: 048
     Dates: start: 20130602, end: 20131017
  3. GABAPENTIN. [Concomitant]
     Active Substance: GABAPENTIN
     Dosage: 300 MG, 2X/DAY (BID)
     Route: 048
     Dates: start: 20131102
  4. PREDNISOLONE. [Concomitant]
     Active Substance: PREDNISOLONE
     Dosage: 10 MG, ONCE DAILY (QD)
     Route: 048
     Dates: start: 201310
  5. VENTOLIN [Concomitant]
     Active Substance: ALBUTEROL SULFATE
     Indication: ASTHMA
     Dosage: 2.5-5 MG
     Route: 055
     Dates: start: 20130907, end: 20130913
  6. KEFLEX [Concomitant]
     Active Substance: CEPHALEXIN
     Indication: ASTHMA
     Dosage: 500 MG, 4X/DAY (QID)
     Route: 048
     Dates: end: 20130904
  7. NAPROXEN. [Concomitant]
     Active Substance: NAPROXEN
     Indication: RHEUMATOID ARTHRITIS
     Dosage: 1000 MG, ONCE DAILY (QD)
     Route: 048
     Dates: start: 2006, end: 20130903
  8. GABAPENTIN. [Concomitant]
     Active Substance: GABAPENTIN
     Indication: POST HERPETIC NEURALGIA
     Dosage: QPM
     Route: 048
     Dates: start: 201306, end: 2013
  9. ENDONE [Concomitant]
     Active Substance: OXYCODONE HYDROCHLORIDE
     Indication: ROTATOR CUFF SYNDROME
  10. IRON [Concomitant]
     Active Substance: IRON
     Indication: IRON DEFICIENCY
     Dosage: 1 UNIT ONCE
     Route: 042
     Dates: start: 20131010, end: 20131010
  11. METHOTREXATE [Concomitant]
     Active Substance: METHOTREXATE
     Indication: RHEUMATOID ARTHRITIS
     Dosage: QS
     Route: 048
     Dates: start: 201206
  12. TARGIN [Concomitant]
     Active Substance: NALOXONE HYDROCHLORIDE\OXYCODONE HYDROCHLORIDE
     Indication: VIRAL INFECTION
     Dosage: 10/5 MID,  20/10 BID (1 TABLET)
     Route: 048
     Dates: start: 20130719, end: 20131019
  13. PREDNISOLONE. [Concomitant]
     Active Substance: PREDNISOLONE
     Dosage: WEANING DOSE ; QD
     Route: 048
     Dates: start: 20130919, end: 201310
  14. LACTULOSE. [Concomitant]
     Active Substance: LACTULOSE
     Indication: CONSTIPATION
     Dosage: QD
     Route: 048
     Dates: start: 20130730, end: 201310
  15. TARGIN [Concomitant]
     Active Substance: NALOXONE HYDROCHLORIDE\OXYCODONE HYDROCHLORIDE
     Indication: ROTATOR CUFF SYNDROME
  16. TARGIN [Concomitant]
     Active Substance: NALOXONE HYDROCHLORIDE\OXYCODONE HYDROCHLORIDE
     Indication: VIRAL INFECTION
     Dosage: 20/10 1 TAB; BID
     Route: 048
     Dates: start: 20130719, end: 20131101
  17. CLINDAMYCIN [Concomitant]
     Active Substance: CLINDAMYCIN\CLINDAMYCIN PHOSPHATE
     Indication: ASTHMA
     Dosage: 150 MG, 4X/DAY (QID)
     Route: 048
     Dates: start: 20130906, end: 20130913
  18. MOMETASONE FUROATE. [Concomitant]
     Active Substance: MOMETASONE FUROATE
     Indication: ASTHMA
     Dosage: 2 PUFFS
     Route: 055
     Dates: start: 20130912, end: 201310
  19. CERTOLIZUMAB PEGOL RA [Suspect]
     Active Substance: CERTOLIZUMAB PEGOL
     Indication: RHEUMATOID ARTHRITIS
     Dosage: 10 DOSES
     Route: 058
     Dates: end: 20130813
  20. NAPROXEN. [Concomitant]
     Active Substance: NAPROXEN
     Dosage: 500 MG, 2X/DAY (BID)
     Route: 048
     Dates: start: 20130904, end: 20130913
  21. GABAPENTIN. [Concomitant]
     Active Substance: GABAPENTIN
     Dosage: TDS
     Route: 048
     Dates: start: 20130723, end: 20131101
  22. AMITRIPTYLINE HYDROCHLORIDE. [Concomitant]
     Active Substance: AMITRIPTYLINE HYDROCHLORIDE
     Indication: POST HERPETIC NEURALGIA
     Dosage: QPM
     Route: 048
     Dates: start: 20130708
  23. PREDNISOLONE. [Concomitant]
     Active Substance: PREDNISOLONE
     Dosage: 15 MG, ONCE DAILY (QD)
     Route: 048
     Dates: start: 20130905, end: 20130911
  24. COLOXYL WITH SENNA [Concomitant]
     Active Substance: DOCUSATE\SENNOSIDES
     Indication: CONSTIPATION
     Dosage: 2 TABS; QD; PRN
     Route: 048
     Dates: start: 20130730, end: 201310
  25. NAPROXEN. [Concomitant]
     Active Substance: NAPROXEN
     Dosage: 1 G, ONCE DAILY (QD)
     Route: 048
     Dates: start: 20130914, end: 20131018
  26. PREDNISOLONE. [Concomitant]
     Active Substance: PREDNISOLONE
     Dosage: 50 MG, ONCE DAILY (QD)
     Route: 048
     Dates: start: 20130912, end: 20130918
  27. TARGIN [Concomitant]
     Active Substance: NALOXONE HYDROCHLORIDE\OXYCODONE HYDROCHLORIDE
     Indication: ROTATOR CUFF SYNDROME
     Dosage: 10/5; 1 TAB BID
     Route: 048
     Dates: start: 20131102
  28. ENDONE [Concomitant]
     Active Substance: OXYCODONE HYDROCHLORIDE
     Indication: VIRAL INFECTION
     Dosage: 5-10 MG Q4-6 HR AS NEEDED
     Route: 048
     Dates: start: 20130730, end: 20131015
  29. TEMAZEPAM. [Concomitant]
     Active Substance: TEMAZEPAM
     Indication: INSOMNIA
     Dosage: 10-20 MG QD PRN
     Route: 048
     Dates: start: 20130730, end: 201310
  30. FOLIC ACID. [Concomitant]
     Active Substance: FOLIC ACID
     Indication: VITAMIN SUPPLEMENTATION
     Dosage: 5 MG, ONCE DAILY (QD)
     Route: 048
     Dates: start: 20130715
  31. PREDNISOLONE. [Concomitant]
     Active Substance: PREDNISOLONE
     Indication: ASTHMA
     Dosage: 20 MG, ONCE DAILY (QD)
     Route: 048
     Dates: start: 20130903, end: 20130905
  32. RULIDE [Concomitant]
     Active Substance: ROXITHROMYCIN
     Indication: ASTHMA
     Dosage: 300 MG, ONCE DAILY (QD)
     Route: 048
     Dates: start: 20130906, end: 20130910
  33. ENDONE [Concomitant]
     Active Substance: OXYCODONE HYDROCHLORIDE
     Indication: PAIN

REACTIONS (1)
  - Gastrointestinal haemorrhage [Recovered/Resolved]

NARRATIVE: CASE EVENT DATE: 20131012
